FAERS Safety Report 21530227 (Version 1)
Quarter: 2022Q4

REPORT INFORMATION
  Report Type: Spontaneous
  Country: US (occurrence: None)
  Receive Date: 20221028
  Receipt Date: 20221028
  Transmission Date: 20230113
  Serious: Yes (Death, Life-Threatening, Hospitalization)
  Sender: FDA-Public Use
  Company Number: None

PATIENT

DRUGS (3)
  1. XARELTO [Suspect]
     Active Substance: RIVAROXABAN
  2. LOVENOX [Suspect]
     Active Substance: ENOXAPARIN SODIUM
  3. ASPIRIN [Suspect]
     Active Substance: ASPIRIN

REACTIONS (4)
  - Cerebrovascular accident [None]
  - Metastases to central nervous system [None]
  - Lactic acidosis [None]
  - Shock [None]

NARRATIVE: CASE EVENT DATE: 20220720
